FAERS Safety Report 7577123-1 (Version None)
Quarter: 2011Q2

REPORT INFORMATION
  Report Type: 
  Country: None (occurrence: None)
  Receive Date: 20110628
  Receipt Date: 20110505
  Transmission Date: 20111010
  Serious: No
  Sender: FDA-Public Use
  Company Number: US-BAYER-2011-040642

PATIENT
  Sex: Female

DRUGS (3)
  1. ALEVE (CAPLET) [Suspect]
     Route: 048
  2. ATIVAN [Concomitant]
     Dosage: 0.5 MG, BID
     Route: 048
  3. NEULASTA [Concomitant]

REACTIONS (1)
  - ABDOMINAL DISCOMFORT [None]
